FAERS Safety Report 13425471 (Version 2)
Quarter: 2017Q2

REPORT INFORMATION
  Report Type: Spontaneous
  Country: US (occurrence: US)
  Receive Date: 20170411
  Receipt Date: 20170623
  Transmission Date: 20170830
  Serious: Yes (Other)
  Sender: FDA-Public Use
  Company Number: US-JNJFOC-20170401004

PATIENT
  Age: 60 Year
  Sex: Male
  Weight: 117.94 kg

DRUGS (1)
  1. INVOKAMET [Suspect]
     Active Substance: CANAGLIFLOZIN\METFORMIN HYDROCHLORIDE
     Indication: DIABETES MELLITUS
     Dosage: DOSE: ^50/1000^
     Route: 048
     Dates: start: 201604

REACTIONS (2)
  - Fungal infection [Unknown]
  - Balanoposthitis [Recovered/Resolved]

NARRATIVE: CASE EVENT DATE: 201609
